FAERS Safety Report 14177549 (Version 1)
Quarter: 2017Q4

REPORT INFORMATION
  Report Type: Spontaneous
  Country: JP (occurrence: JP)
  Receive Date: 20171110
  Receipt Date: 20171110
  Transmission Date: 20180321
  Serious: Yes (Other)
  Sender: FDA-Public Use
  Company Number: JP-TEVA-824838ROM

PATIENT
  Age: 3 Year
  Sex: Female

DRUGS (11)
  1. CISPLATIN. [Suspect]
     Active Substance: CISPLATIN
     Indication: PANCREATOBLASTOMA
     Dosage: CYCLE 1: 16MG/M2/D ON DAY 1-5 EVERY 4 WEEKS
     Route: 065
  2. CISPLATIN. [Suspect]
     Active Substance: CISPLATIN
     Dosage: CYCLE 5: 72MG/M2/D ON DAY 2 EVERY 4 WEEKS
     Route: 065
  3. PIRARUBICIN [Suspect]
     Active Substance: PIRARUBICIN
     Indication: PANCREATOBLASTOMA
     Dosage: CYCLE 1: 32MG/M2/D ON DAY 3 EVERY 4 WEEKS
     Route: 065
  4. PIRARUBICIN [Suspect]
     Active Substance: PIRARUBICIN
     Dosage: CYCLE 5: 32 MG/M2/D ON DAY 1 EVERY 4 WEEKS
     Route: 065
  5. VINCRISTINE [Suspect]
     Active Substance: VINCRISTINE
     Indication: PANCREATOBLASTOMA
     Dosage: CYCLE 1: 1.2 MG/M2/D ON DAY 1 EVERY 4 WEEKS
     Route: 065
  6. VINCRISTINE [Suspect]
     Active Substance: VINCRISTINE
     Dosage: CYCLES 2, 3 AND 4: 1.5 MG/M2/D ON DAY 1 EVERY 4 WEEKS
     Route: 065
  7. CISPLATIN. [Suspect]
     Active Substance: CISPLATIN
     Dosage: CYCLES 2: 20MG/M2/D ON DAY 1-5 EVERY 4 WEEKS
     Route: 065
  8. CYCLOPHOSPHAMIDE. [Suspect]
     Active Substance: CYCLOPHOSPHAMIDE
     Indication: PANCREATOBLASTOMA
     Dosage: CYCLE 1: 960 MG/M2/D ON DAY 1 EVERY 4 WEEKS
     Route: 065
  9. CYCLOPHOSPHAMIDE. [Suspect]
     Active Substance: CYCLOPHOSPHAMIDE
     Dosage: CYCLES 2, 3 AND 4: 1200 MG/M2/D ON DAY 1 EVERY 4 WEEKS
     Route: 065
  10. CISPLATIN. [Suspect]
     Active Substance: CISPLATIN
     Dosage: CYCLE 3 AND 4: 90MG/M2/D ON DAY 1 EVERY 4 WEEKS
     Route: 065
  11. PIRARUBICIN [Suspect]
     Active Substance: PIRARUBICIN
     Dosage: CYCLES 2, 3 AND 4: 40MG/M2/D ON DAY 3 EVERY 4 WEEKS
     Route: 065

REACTIONS (1)
  - Pancytopenia [Unknown]
